FAERS Safety Report 25567000 (Version 1)
Quarter: 2025Q3

REPORT INFORMATION
  Report Type: Spontaneous
  Country: JP (occurrence: JP)
  Receive Date: 20250716
  Receipt Date: 20250716
  Transmission Date: 20251020
  Serious: Yes (Other)
  Sender: ALEXION PHARMACEUTICALS
  Company Number: JP-ASTRAZENECA-202507JPN010999JP

PATIENT
  Sex: Female

DRUGS (1)
  1. LYNPARZA [Suspect]
     Active Substance: OLAPARIB
     Route: 065

REACTIONS (7)
  - Haematochezia [Unknown]
  - Peripheral swelling [Unknown]
  - Joint stiffness [Unknown]
  - Renal function test abnormal [Unknown]
  - Hypoaesthesia [Unknown]
  - Muscular weakness [Unknown]
  - Gait disturbance [Unknown]
